FAERS Safety Report 20230249 (Version 1)
Quarter: 2021Q4

REPORT INFORMATION
  Report Type: Spontaneous
  Country: US (occurrence: US)
  Receive Date: 20211226
  Receipt Date: 20211226
  Transmission Date: 20220304
  Serious: Yes (Other)
  Sender: FDA-Public Use
  Company Number: US-BRISTOL-MYERS SQUIBB COMPANY-BMS-2021-137843

PATIENT
  Age: 67 Year
  Sex: Male
  Weight: 90.71 kg

DRUGS (2)
  1. YERVOY [Suspect]
     Active Substance: IPILIMUMAB
     Indication: Sarcoma metastatic
     Dosage: ROUTE:IV INFUSION, ONCE MONTHLY(EVERY 4 WEEKS)
     Route: 050
     Dates: start: 202106, end: 202110
  2. OPDIVO [Suspect]
     Active Substance: NIVOLUMAB
     Indication: Sarcoma metastatic
     Dosage: UNK
     Route: 065
     Dates: start: 202106

REACTIONS (9)
  - Hallucination, visual [Unknown]
  - Thyroid disorder [Unknown]
  - Pituitary enlargement [Unknown]
  - Somnolence [Unknown]
  - Fatigue [Unknown]
  - Memory impairment [Unknown]
  - Decreased appetite [Unknown]
  - Abdominal discomfort [Unknown]
  - Intentional product use issue [Unknown]

NARRATIVE: CASE EVENT DATE: 20211001
